FAERS Safety Report 7938564-3 (Version None)
Quarter: 2011Q4

REPORT INFORMATION
  Report Type: 
  Country: None (occurrence: None)
  Receive Date: 20111123
  Receipt Date: 20111114
  Transmission Date: 20120403
  Serious: Yes (Other)
  Sender: FDA-Public Use
  Company Number: US-ASTRAZENECA-2011SE62817

PATIENT
  Age: 52 Year
  Sex: Female
  Weight: 104.5 kg

DRUGS (12)
  1. NPLATE [Suspect]
     Route: 058
  2. PROPRANOLOL [Concomitant]
  3. NPLATE [Suspect]
     Route: 058
  4. CELEBREX [Concomitant]
  5. POTASSIUM [Concomitant]
  6. ZOLOFT [Concomitant]
  7. SEROQUEL [Suspect]
     Route: 048
  8. NPLATE [Suspect]
     Route: 058
  9. NPLATE [Suspect]
     Route: 058
  10. CYANOCOBALAMIN [Concomitant]
     Dates: start: 20110104
  11. FEMARA [Concomitant]
  12. NPLATE [Suspect]
     Indication: THROMBOCYTOPENIA
     Dosage: 1 MCG/KG WITH UNKNOWN FREQUENCY
     Route: 058
     Dates: start: 20110408, end: 20110616

REACTIONS (3)
  - ANAEMIA MACROCYTIC [None]
  - DRUG INEFFECTIVE [None]
  - THROMBOCYTOPENIA [None]
